FAERS Safety Report 5066294-7 (Version None)
Quarter: 2006Q3

REPORT INFORMATION
  Report Type: 
  Country: None (occurrence: None)
  Receive Date: 20060801
  Receipt Date: 20060727
  Transmission Date: 20061208
  Serious: Yes (Death)
  Sender: FDA-Public Use
  Company Number: 2006CG01286

PATIENT
  Age: 85 Year
  Sex: Female
  Weight: 50 kg

DRUGS (11)
  1. ZESTRIL [Suspect]
     Indication: ESSENTIAL HYPERTENSION
     Route: 048
  2. DEPAKENE [Suspect]
     Indication: EPILEPSY
     Route: 048
     Dates: start: 20060615
  3. LEXOMIL ROCHE [Suspect]
     Route: 048
     Dates: start: 20060627, end: 20060627
  4. PREVISCAN [Suspect]
     Indication: ATRIAL FIBRILLATION
     Route: 048
     Dates: start: 20040615
  5. PREVISCAN [Suspect]
     Indication: ATRIAL FLUTTER
     Route: 048
     Dates: start: 20040615
  6. HEMIGOXINE NATIVELLE [Suspect]
     Route: 048
     Dates: start: 20060625
  7. RISPERDAL [Suspect]
     Indication: NEUROSIS
     Route: 048
     Dates: start: 20060627, end: 20060627
  8. CARDENSIEL [Concomitant]
     Dates: start: 20060628
  9. AUGMENTIN '125' [Concomitant]
     Indication: PYURIA
     Route: 042
     Dates: start: 20060628
  10. AUGMENTIN '125' [Concomitant]
     Indication: ESCHERICHIA URINARY TRACT INFECTION
     Route: 042
     Dates: start: 20060628
  11. OXYGEN [Concomitant]
     Indication: RESPIRATORY TRACT CONGESTION

REACTIONS (13)
  - AGITATION [None]
  - CARDIAC FAILURE [None]
  - CONFUSIONAL STATE [None]
  - CRYING [None]
  - CULTURE URINE POSITIVE [None]
  - DEATH [None]
  - EPILEPSY [None]
  - ESCHERICHIA INFECTION [None]
  - HYPERTHERMIA [None]
  - HYPOKALAEMIA [None]
  - PULMONARY CONGESTION [None]
  - PYURIA [None]
  - RENAL FAILURE [None]
